FAERS Safety Report 4972222-2 (Version None)
Quarter: 2006Q2

REPORT INFORMATION
  Report Type: 
  Country: None (occurrence: None)
  Receive Date: 20060413
  Receipt Date: 20060406
  Transmission Date: 20061013
  Serious: Yes (Hospitalization)
  Sender: FDA-Public Use
  Company Number: FR-GLAXOSMITHKLINE-B0420104A

PATIENT
  Age: 83 Year
  Sex: Male

DRUGS (6)
  1. AUGMENTIN '125' [Suspect]
     Indication: CHRONIC OBSTRUCTIVE PULMONARY DISEASE
     Dosage: 3G PER DAY
     Route: 048
     Dates: start: 20051222, end: 20051223
  2. BIRODOGYL [Suspect]
     Indication: TOOTH INFECTION
     Dosage: 1UNIT THREE TIMES PER DAY
     Route: 048
     Dates: start: 20051220, end: 20051223
  3. OFLOCET [Suspect]
     Indication: CHRONIC OBSTRUCTIVE PULMONARY DISEASE
     Dosage: 400MG PER DAY
     Route: 048
     Dates: start: 20051222, end: 20051223
  4. ROVAMYCINE [Concomitant]
     Route: 065
     Dates: start: 20051223, end: 20051225
  5. FLAGYL [Concomitant]
     Route: 065
     Dates: start: 20051223, end: 20051225
  6. ROCEPHIN [Concomitant]
     Route: 065
     Dates: start: 20051223, end: 20051225

REACTIONS (2)
  - ANAPHYLACTIC SHOCK [None]
  - URTICARIA [None]
